FAERS Safety Report 22033035 (Version 1)
Quarter: 2023Q1

REPORT INFORMATION
  Report Type: Spontaneous
  Country: US (occurrence: US)
  Receive Date: 20230224
  Receipt Date: 20230224
  Transmission Date: 20230418
  Serious: Yes (Other)
  Sender: FDA-Public Use
  Company Number: US-BAYER-2023A018112

PATIENT

DRUGS (1)
  1. LOTRIMIN AF ANTIFUNGAL [Suspect]
     Active Substance: MICONAZOLE NITRATE
     Dosage: UNK
     Route: 061

REACTIONS (5)
  - Skin reaction [Unknown]
  - Skin irritation [Unknown]
  - Lymphadenopathy [Unknown]
  - Inflammation [None]
  - Recalled product administered [None]
